FAERS Safety Report 19293319 (Version 1)
Quarter: 2021Q2

REPORT INFORMATION
  Report Type: Spontaneous
  Country: US (occurrence: US)
  Receive Date: 20210523
  Receipt Date: 20210523
  Transmission Date: 20210717
  Serious: Yes (Hospitalization)
  Sender: FDA-Public Use
  Company Number: None

PATIENT
  Age: 61 Year
  Sex: Female
  Weight: 51.3 kg

DRUGS (6)
  1. TRESIBA [Suspect]
     Active Substance: INSULIN DEGLUDEC
     Indication: DIABETES MELLITUS
     Route: 058
     Dates: start: 20210505, end: 20210507
  2. MAGNEZIUM [Concomitant]
  3. JANUVIA [Concomitant]
     Active Substance: SITAGLIPTIN PHOSPHATE
  4. GLIPIZOLE [Concomitant]
  5. ALIVE VIAMINS [Concomitant]
  6. BETAINE [Concomitant]
     Active Substance: BETAINE

REACTIONS (9)
  - Peripheral swelling [None]
  - Insomnia [None]
  - Hallucination [None]
  - Irritability [None]
  - Hyperhidrosis [None]
  - Agitation [None]
  - Dizziness [None]
  - Abdominal discomfort [None]
  - Hypersensitivity [None]

NARRATIVE: CASE EVENT DATE: 20210507
